FAERS Safety Report 13457649 (Version 6)
Quarter: 2021Q3

REPORT INFORMATION
  Report Type: Spontaneous
  Country: US (occurrence: US)
  Receive Date: 20170419
  Receipt Date: 20210729
  Transmission Date: 20211014
  Serious: Yes (Other)
  Sender: FDA-Public Use
  Company Number: US-ASTRAZENECA-2017SE38377

PATIENT
  Age: 728 Month
  Sex: Female

DRUGS (110)
  1. NEXIUM [Suspect]
     Active Substance: ESOMEPRAZOLE MAGNESIUM
     Indication: GASTROOESOPHAGEAL REFLUX DISEASE
     Dosage: GENERIC
     Route: 065
  2. NEXIUM [Suspect]
     Active Substance: ESOMEPRAZOLE MAGNESIUM
     Indication: GASTROOESOPHAGEAL REFLUX DISEASE
     Route: 048
     Dates: start: 20160120
  3. NEXIUM [Suspect]
     Active Substance: ESOMEPRAZOLE MAGNESIUM
     Indication: GASTROOESOPHAGEAL REFLUX DISEASE
     Route: 048
     Dates: start: 20160131
  4. PROTONIX [Suspect]
     Active Substance: PANTOPRAZOLE SODIUM
     Indication: GASTROOESOPHAGEAL REFLUX DISEASE
     Dosage: GENERIC?PANTOPRAZOLE UNKNOWN
     Route: 065
     Dates: start: 2016
  5. TORADOL [Concomitant]
     Active Substance: KETOROLAC TROMETHAMINE
     Route: 065
     Dates: end: 20170202
  6. ALENDRONATE [Concomitant]
     Active Substance: ALENDRONATE SODIUM
     Dosage: TAKE 1 TABLET BY MOUTH ONCE A WEEK FOR 4 WEEKS
     Route: 048
     Dates: start: 20160615
  7. OXYCODONE [Concomitant]
     Active Substance: OXYCODONE
     Dosage: 20 MG TABLETS 2 TABLETS BY MOUTH IN THE MORNING, 2 TABLETS BY MOUTH IN THE EVENING AND 1 TAB AT B...
  8. LIDOCAINE. [Concomitant]
     Active Substance: LIDOCAINE
     Dates: start: 20160121
  9. ACETAMINOPHEN. [Concomitant]
     Active Substance: ACETAMINOPHEN
  10. BUPIVACAINE. [Concomitant]
     Active Substance: BUPIVACAINE
     Route: 065
  11. OMNIPAQUE [Concomitant]
     Active Substance: IOHEXOL
     Route: 065
  12. CORTISONE [Concomitant]
     Active Substance: CORTISONE
  13. FIORICET [Concomitant]
     Active Substance: ACETAMINOPHEN\BUTALBITAL\CAFFEINE
  14. PROCHLORPERAZINE. [Concomitant]
     Active Substance: PROCHLORPERAZINE
  15. AMITIZA [Concomitant]
     Active Substance: LUBIPROSTONE
  16. LINZESS [Concomitant]
     Active Substance: LINACLOTIDE
  17. ALBUTEROL/IPRATROPIUM [Concomitant]
     Active Substance: ALBUTEROL\IPRATROPIUM
  18. BROVANA [Concomitant]
     Active Substance: ARFORMOTEROL TARTRATE
  19. MELATONIN [Concomitant]
     Active Substance: MELATONIN
  20. TAMSULOSIN [Concomitant]
     Active Substance: TAMSULOSIN
  21. NEXIUM [Suspect]
     Active Substance: ESOMEPRAZOLE MAGNESIUM
     Indication: GASTROOESOPHAGEAL REFLUX DISEASE
     Route: 048
     Dates: start: 20160617
  22. PROTONIX [Suspect]
     Active Substance: PANTOPRAZOLE SODIUM
     Indication: GASTROOESOPHAGEAL REFLUX DISEASE
     Dosage: UNKNOWN
     Route: 065
     Dates: start: 2017
  23. ZEGERID [Concomitant]
     Active Substance: OMEPRAZOLE\SODIUM BICARBONATE
     Route: 065
  24. ALPRAZOLAM. [Concomitant]
     Active Substance: ALPRAZOLAM
     Indication: ANXIETY
     Dosage: 1 MG PO QID PRN
     Route: 048
     Dates: start: 2005, end: 2016
  25. IBUPROFEN. [Concomitant]
     Active Substance: IBUPROFEN
     Indication: PAIN
     Route: 065
     Dates: start: 2005
  26. AMLODIPINE BESYLATE. [Concomitant]
     Active Substance: AMLODIPINE BESYLATE
     Route: 048
     Dates: start: 20160709
  27. HYDROMORPHONE [Concomitant]
     Active Substance: HYDROMORPHONE
     Route: 065
  28. LABETALOL [Concomitant]
     Active Substance: LABETALOL\LABETALOL HYDROCHLORIDE
     Route: 065
  29. CIPROFLOXACIN. [Concomitant]
     Active Substance: CIPROFLOXACIN
     Route: 065
  30. CEPHALEXIN. [Concomitant]
     Active Substance: CEPHALEXIN
  31. SODIUM POLYSTERENE SULFONATE [Concomitant]
  32. DEXAMETHASONE. [Concomitant]
     Active Substance: DEXAMETHASONE
  33. CRESTOR [Concomitant]
     Active Substance: ROSUVASTATIN CALCIUM
  34. NEXIUM [Suspect]
     Active Substance: ESOMEPRAZOLE MAGNESIUM
     Indication: GASTROOESOPHAGEAL REFLUX DISEASE
     Route: 048
     Dates: start: 2016
  35. PROTONIX [Suspect]
     Active Substance: PANTOPRAZOLE SODIUM
     Indication: GASTROOESOPHAGEAL REFLUX DISEASE
     Dosage: GENERIC40.0MG UNKNOWN
     Route: 065
     Dates: start: 20101031, end: 20101113
  36. PROTONIX [Suspect]
     Active Substance: PANTOPRAZOLE SODIUM
     Indication: GASTROOESOPHAGEAL REFLUX DISEASE
     Dosage: GENERIC?PANTOPRAZOLE UNKNOWN
     Route: 065
     Dates: start: 2016
  37. ALTACE [Concomitant]
     Active Substance: RAMIPRIL
     Indication: HYPERTENSION
     Dates: start: 2005, end: 2007
  38. HYDROCHLOROTHIAZIDE. [Concomitant]
     Active Substance: HYDROCHLOROTHIAZIDE
     Indication: HYPERTENSION
     Route: 065
     Dates: start: 2005, end: 2008
  39. ASPIRIN. [Concomitant]
     Active Substance: ASPIRIN
     Indication: PAIN
     Route: 048
     Dates: start: 2017
  40. LYRICA [Concomitant]
     Active Substance: PREGABALIN
     Route: 065
  41. DOCUSATE [Concomitant]
     Active Substance: DOCUSATE
     Route: 065
  42. CEFEPIME [Concomitant]
     Active Substance: CEFEPIME HYDROCHLORIDE
     Route: 065
  43. NICOTROL [Concomitant]
     Active Substance: NICOTINE
     Route: 065
  44. FLUCONAZOLE. [Concomitant]
     Active Substance: FLUCONAZOLE
  45. IPRATROPIUM [Concomitant]
     Active Substance: IPRATROPIUM
  46. NEXIUM [Suspect]
     Active Substance: ESOMEPRAZOLE MAGNESIUM
     Indication: GASTROOESOPHAGEAL REFLUX DISEASE
     Route: 048
     Dates: start: 2016
  47. NEXIUM [Suspect]
     Active Substance: ESOMEPRAZOLE MAGNESIUM
     Indication: GASTROOESOPHAGEAL REFLUX DISEASE
     Route: 048
     Dates: start: 20160617
  48. NEXIUM [Suspect]
     Active Substance: ESOMEPRAZOLE MAGNESIUM
     Indication: GASTROOESOPHAGEAL REFLUX DISEASE
     Route: 048
     Dates: start: 20160131
  49. NEXIUM [Suspect]
     Active Substance: ESOMEPRAZOLE MAGNESIUM
     Indication: GASTROOESOPHAGEAL REFLUX DISEASE
     Dosage: GENERIC
     Route: 065
     Dates: start: 20160213
  50. PROTONIX [Suspect]
     Active Substance: PANTOPRAZOLE SODIUM
     Indication: GASTROOESOPHAGEAL REFLUX DISEASE
     Dosage: UNKNOWN
     Route: 065
     Dates: start: 2017
  51. PREVACID [Concomitant]
     Active Substance: LANSOPRAZOLE
     Route: 065
  52. RANITIDINE. [Concomitant]
     Active Substance: RANITIDINE
     Route: 065
     Dates: start: 2005
  53. HYDRALAZINE [Concomitant]
     Active Substance: HYDRALAZINE HYDROCHLORIDE
     Dosage: TAKE 1 TABLET BY MOUTH 4 TIMES A DAY
     Route: 048
     Dates: start: 20160731
  54. LASIX [Concomitant]
     Active Substance: FUROSEMIDE
  55. CARDENE [Concomitant]
     Active Substance: NICARDIPINE HYDROCHLORIDE
  56. ALBUTEROL. [Concomitant]
     Active Substance: ALBUTEROL
     Route: 065
  57. CLOPIDOGREL [Concomitant]
     Active Substance: CLOPIDOGREL BISULFATE
     Route: 065
  58. NEOMYCIN. [Concomitant]
     Active Substance: NEOMYCIN
     Route: 065
  59. XOPENEX [Concomitant]
     Active Substance: LEVALBUTEROL HYDROCHLORIDE
     Dates: start: 20170907
  60. VITAMIN D [Concomitant]
     Active Substance: VITAMIN D NOS
  61. DESYREL [Concomitant]
     Active Substance: TRAZODONE HYDROCHLORIDE
  62. PREDNISONE. [Concomitant]
     Active Substance: PREDNISONE
     Route: 065
  63. AZITHROMYCIN ANHYDROUS. [Concomitant]
     Active Substance: AZITHROMYCIN ANHYDROUS
  64. HALODOL [Concomitant]
     Active Substance: HALOPERIDOL
  65. NEXIUM [Suspect]
     Active Substance: ESOMEPRAZOLE MAGNESIUM
     Indication: GASTROOESOPHAGEAL REFLUX DISEASE
     Route: 048
     Dates: start: 2005, end: 2016
  66. NEXIUM [Suspect]
     Active Substance: ESOMEPRAZOLE MAGNESIUM
     Indication: GASTROOESOPHAGEAL REFLUX DISEASE
     Route: 048
     Dates: start: 20160120
  67. MIRALAX [Concomitant]
     Active Substance: POLYETHYLENE GLYCOL 3350
     Route: 065
  68. CHOLECALCIFEROL [Concomitant]
     Active Substance: CHOLECALCIFEROL
     Route: 065
  69. TIZANIDINE. [Concomitant]
     Active Substance: TIZANIDINE
     Route: 065
  70. ZOFRAN [Concomitant]
     Active Substance: ONDANSETRON HYDROCHLORIDE
  71. THIAMINE. [Concomitant]
     Active Substance: THIAMINE
  72. NEXIUM [Suspect]
     Active Substance: ESOMEPRAZOLE MAGNESIUM
     Indication: GASTROOESOPHAGEAL REFLUX DISEASE
     Route: 048
     Dates: start: 2005, end: 2016
  73. NEXIUM [Suspect]
     Active Substance: ESOMEPRAZOLE MAGNESIUM
     Indication: GASTROOESOPHAGEAL REFLUX DISEASE
     Route: 048
     Dates: start: 20140526
  74. ENALAPRIL [Concomitant]
     Active Substance: ENALAPRIL
     Indication: HYPERTENSION
     Route: 065
     Dates: start: 2008, end: 2016
  75. MOVANTIK [Concomitant]
     Active Substance: NALOXEGOL OXALATE
     Dates: start: 20160412
  76. METOPROLOL. [Concomitant]
     Active Substance: METOPROLOL
  77. BUDESONIDE. [Concomitant]
     Active Substance: BUDESONIDE
     Route: 065
  78. ERYTHROMYCIN. [Concomitant]
     Active Substance: ERYTHROMYCIN
     Route: 065
  79. MAGNESIUM OXIDE. [Concomitant]
     Active Substance: MAGNESIUM OXIDE
  80. MECLIZINE [Concomitant]
     Active Substance: MECLIZINE HYDROCHLORIDE
  81. SODIUM CHLORIDE. [Concomitant]
     Active Substance: SODIUM CHLORIDE
  82. NEXIUM [Suspect]
     Active Substance: ESOMEPRAZOLE MAGNESIUM
     Indication: GASTROOESOPHAGEAL REFLUX DISEASE
     Route: 048
     Dates: start: 20140526
  83. NEXIUM [Suspect]
     Active Substance: ESOMEPRAZOLE MAGNESIUM
     Indication: GASTROOESOPHAGEAL REFLUX DISEASE
     Dosage: GENERIC
     Route: 065
     Dates: start: 20160213
  84. PROTONIX [Suspect]
     Active Substance: PANTOPRAZOLE SODIUM
     Indication: GASTROOESOPHAGEAL REFLUX DISEASE
     Dosage: GENERIC40.0MG UNKNOWN
     Route: 065
     Dates: start: 20101031, end: 20101113
  85. PROTONIX [Suspect]
     Active Substance: PANTOPRAZOLE SODIUM
     Indication: GASTROOESOPHAGEAL REFLUX DISEASE
     Dosage: GENERIC40.0MG UNKNOWN
     Route: 048
     Dates: start: 20170907
  86. PRILOSEC [Concomitant]
     Active Substance: OMEPRAZOLE MAGNESIUM
     Route: 048
  87. LEVAQUIN [Concomitant]
     Active Substance: LEVOFLOXACIN
     Indication: INFECTION
     Route: 065
     Dates: start: 2006, end: 2015
  88. CYMBALTA [Concomitant]
     Active Substance: DULOXETINE HYDROCHLORIDE
     Indication: PAIN
     Route: 065
     Dates: start: 2011
  89. METRONIDAZOLE. [Concomitant]
     Active Substance: METRONIDAZOLE
  90. HEPARIN [Concomitant]
     Active Substance: HEPARIN SODIUM
     Route: 065
  91. LIPITOR [Concomitant]
     Active Substance: ATORVASTATIN CALCIUM
     Route: 065
  92. ZOLPIDEM [Concomitant]
     Active Substance: ZOLPIDEM TARTRATE
  93. LISINOPRIL. [Concomitant]
     Active Substance: LISINOPRIL
  94. VOLTAREN [Concomitant]
     Active Substance: DICLOFENAC SODIUM
  95. BEVESPI AEROSPHERE [Concomitant]
     Active Substance: FORMOTEROL FUMARATE\GLYCOPYRROLATE
  96. KEPPRA [Concomitant]
     Active Substance: LEVETIRACETAM
  97. DIFUROXIME [Concomitant]
  98. PAROXETINE. [Concomitant]
     Active Substance: PAROXETINE
  99. NEXIUM [Suspect]
     Active Substance: ESOMEPRAZOLE MAGNESIUM
     Indication: GASTROOESOPHAGEAL REFLUX DISEASE
     Dosage: GENERIC
     Route: 065
  100. PROTONIX [Suspect]
     Active Substance: PANTOPRAZOLE SODIUM
     Indication: GASTROOESOPHAGEAL REFLUX DISEASE
     Dosage: 40.0MG UNKNOWN
     Route: 048
     Dates: start: 20160520
  101. PROTONIX [Suspect]
     Active Substance: PANTOPRAZOLE SODIUM
     Indication: GASTROOESOPHAGEAL REFLUX DISEASE
     Dosage: 40.0MG UNKNOWN
     Route: 048
     Dates: start: 20160520
  102. PROTONIX [Suspect]
     Active Substance: PANTOPRAZOLE SODIUM
     Indication: GASTROOESOPHAGEAL REFLUX DISEASE
     Dosage: GENERIC40.0MG UNKNOWN
     Route: 048
     Dates: start: 20170907
  103. DEXILANT [Concomitant]
     Active Substance: DEXLANSOPRAZOLE
     Route: 065
  104. TRAMADOL. [Concomitant]
     Active Substance: TRAMADOL
     Indication: PAIN
     Route: 065
     Dates: start: 2005, end: 2011
  105. BENZONATATE. [Concomitant]
     Active Substance: BENZONATATE
     Route: 065
  106. CLONIDINE. [Concomitant]
     Active Substance: CLONIDINE
     Route: 065
  107. CHANTIX [Concomitant]
     Active Substance: VARENICLINE TARTRATE
  108. OXYBUTININ CHLORIDE [Concomitant]
  109. ANORO ELLIPTA [Concomitant]
     Active Substance: UMECLIDINIUM BROMIDE\VILANTEROL TRIFENATATE
  110. FEBUXOSTAT. [Concomitant]
     Active Substance: FEBUXOSTAT

REACTIONS (5)
  - Renal failure [Unknown]
  - Acute kidney injury [Not Recovered/Not Resolved]
  - Nephrogenic anaemia [Unknown]
  - Hyperparathyroidism secondary [Unknown]
  - Chronic kidney disease [Not Recovered/Not Resolved]

NARRATIVE: CASE EVENT DATE: 201604
